FAERS Safety Report 5127273-4 (Version None)
Quarter: 2006Q4

REPORT INFORMATION
  Report Type: 
  Country: None (occurrence: None)
  Receive Date: 20061010
  Receipt Date: 20060927
  Transmission Date: 20070319
  Serious: Yes (Hospitalization, Other)
  Sender: FDA-Public Use
  Company Number: 223753

PATIENT
  Age: 65 Year
  Sex: Female

DRUGS (8)
  1. MABTHERA(RITUXIMAB) CONC FOR SOLUTION FOR INFUSION [Suspect]
     Indication: RHEUMATOID ARTHRITIS
     Dosage: 1 G, INTRAVENOUS
     Route: 042
     Dates: start: 20060320
  2. ENBREL [Concomitant]
  3. HUMIRA [Concomitant]
  4. METHOTREXATE [Concomitant]
  5. PREVISCAN (FLUINDIONE) [Concomitant]
  6. PERFALGAN (ACETAMINOPHEN) [Concomitant]
  7. POLARAMINE [Concomitant]
  8. HYDROCORTISONE [Concomitant]

REACTIONS (1)
  - PULMONARY EMBOLISM [None]
